FAERS Safety Report 16742558 (Version 1)
Quarter: 2019Q3

REPORT INFORMATION
  Report Type: Report from Study
  Country: DE (occurrence: DE)
  Receive Date: 20190826
  Receipt Date: 20190826
  Transmission Date: 20191005
  Serious: Yes (Other)
  Sender: FDA-Public Use
  Company Number: DE-BIOGEN-2019BI00778524

PATIENT
  Sex: Female
  Weight: 63 kg

DRUGS (1)
  1. AVONEX [Suspect]
     Active Substance: INTERFERON BETA-1A
     Indication: MULTIPLE SCLEROSIS
     Route: 030
     Dates: start: 20120201, end: 201809

REACTIONS (4)
  - High risk pregnancy [Unknown]
  - Liver function test increased [Unknown]
  - Retained placenta or membranes [Unknown]
  - Maternal exposure during pregnancy [Recovered/Resolved]
